FAERS Safety Report 19186467 (Version 9)
Quarter: 2024Q1

REPORT INFORMATION
  Report Type: Other
  Country: CA (occurrence: None)
  Receive Date: 20210427
  Receipt Date: 20240318
  Transmission Date: 20240410
  Serious: Yes (Hospitalization, Other)
  Sender: FDA-Public Use
  Company Number: CA-ROCHE-2814467

PATIENT
  Sex: Female
  Weight: 47 kg

DRUGS (29)
  1. ACTEMRA [Suspect]
     Active Substance: TOCILIZUMAB
     Indication: Juvenile idiopathic arthritis
     Route: 042
     Dates: start: 20210309
  2. ACTEMRA [Suspect]
     Active Substance: TOCILIZUMAB
     Indication: Uveitis
  3. ACTEMRA [Suspect]
     Active Substance: TOCILIZUMAB
     Indication: Juvenile idiopathic arthritis
  4. CELLCEPT [Suspect]
     Active Substance: MYCOPHENOLATE MOFETIL
     Indication: Product used for unknown indication
     Route: 065
  5. PREDNISONE [Suspect]
     Active Substance: PREDNISONE
     Indication: Product used for unknown indication
     Route: 065
  6. RITUXAN [Suspect]
     Active Substance: RITUXIMAB
     Indication: Juvenile idiopathic arthritis
     Dosage: DAY 1,15
     Route: 041
     Dates: start: 20190501, end: 20200512
  7. LEFLUNOMIDE [Concomitant]
     Active Substance: LEFLUNOMIDE
     Indication: Product used for unknown indication
  8. ACCUTANE [Concomitant]
     Active Substance: ISOTRETINOIN
     Indication: Product used for unknown indication
  9. ARAVA [Concomitant]
     Active Substance: LEFLUNOMIDE
     Indication: Product used for unknown indication
  10. AZOPT [Concomitant]
     Active Substance: BRINZOLAMIDE
     Indication: Product used for unknown indication
  11. BENADRYL [Concomitant]
     Active Substance: DIPHENHYDRAMINE HYDROCHLORIDE
     Indication: Premedication
     Route: 048
  12. CANNABIDIOL [Concomitant]
     Active Substance: CANNABIDIOL
     Indication: Product used for unknown indication
  13. DEXTROAMPHETAMINE [Concomitant]
     Active Substance: DEXTROAMPHETAMINE
     Indication: Product used for unknown indication
  14. DIAMOX SEQUELS [Concomitant]
     Active Substance: ACETAZOLAMIDE
     Indication: Product used for unknown indication
  15. DUREZOL [Concomitant]
     Active Substance: DIFLUPREDNATE
     Indication: Product used for unknown indication
  16. GABAPENTIN [Concomitant]
     Active Substance: GABAPENTIN
     Indication: Product used for unknown indication
  17. MELOXICAM [Concomitant]
     Active Substance: MELOXICAM
     Indication: Product used for unknown indication
  18. NORTRIPTYLINE [Concomitant]
     Active Substance: NORTRIPTYLINE
     Indication: Product used for unknown indication
     Dosage: 30-60 MG MICROGRAM
  19. PAXIL [Concomitant]
     Active Substance: PAROXETINE HYDROCHLORIDE
     Indication: Product used for unknown indication
  20. PILOCARPINE [Concomitant]
     Active Substance: PILOCARPINE
     Indication: Product used for unknown indication
     Dosage: RIGHT EYE
  21. TIMOLOL MALEATE\TRAVOPROST [Concomitant]
     Active Substance: TIMOLOL MALEATE\TRAVOPROST
     Indication: Product used for unknown indication
  22. TYLENOL [Concomitant]
     Active Substance: ACETAMINOPHEN
     Indication: Premedication
     Route: 048
  23. VENLAFAXINE [Concomitant]
     Active Substance: VENLAFAXINE HYDROCHLORIDE
     Indication: Product used for unknown indication
  24. FLUOROMETHOLONE [Concomitant]
     Active Substance: FLUOROMETHOLONE
  25. VYVANSE [Concomitant]
     Active Substance: LISDEXAMFETAMINE DIMESYLATE
  26. ADVIL [Concomitant]
     Active Substance: IBUPROFEN
  27. LANSOPRAZOLE [Concomitant]
     Active Substance: LANSOPRAZOLE
  28. LATANOPROST [Concomitant]
     Active Substance: LATANOPROST
  29. PAROXETINE [Concomitant]
     Active Substance: PAROXETINE

REACTIONS (33)
  - Depression [Unknown]
  - Meningitis [Recovering/Resolving]
  - Cataract [Unknown]
  - Oral pain [Unknown]
  - Acne [Unknown]
  - Off label use [Unknown]
  - Heart rate increased [Unknown]
  - Aphthous ulcer [Recovered/Resolved]
  - Drug ineffective [Unknown]
  - Glaucoma [Unknown]
  - Encephalitis [Unknown]
  - Eye disorder [Unknown]
  - Mouth ulceration [Unknown]
  - Arthralgia [Unknown]
  - Dry eye [Unknown]
  - Abdominal discomfort [Unknown]
  - Joint swelling [Unknown]
  - Arthralgia [Unknown]
  - Arthropathy [Unknown]
  - Musculoskeletal stiffness [Unknown]
  - Hyperhidrosis [Not Recovered/Not Resolved]
  - Erythema [Recovered/Resolved]
  - Chest pain [Unknown]
  - Dry mouth [Unknown]
  - Mouth ulceration [Unknown]
  - Raynaud^s phenomenon [Unknown]
  - Back pain [Unknown]
  - Device breakage [Unknown]
  - Dyschezia [Unknown]
  - Paraesthesia [Unknown]
  - Gastrooesophageal reflux disease [Unknown]
  - Gastrooesophageal reflux disease [Unknown]
  - Iron deficiency anaemia [Unknown]

NARRATIVE: CASE EVENT DATE: 20210101
